FAERS Safety Report 6889953-X (Version None)
Quarter: 2010Q3

REPORT INFORMATION
  Report Type: 
  Country: None (occurrence: None)
  Receive Date: 20100730
  Receipt Date: 20080614
  Transmission Date: 20110219
  Serious: No
  Sender: FDA-Public Use
  Company Number: US-PFIZER INC-2008029168

PATIENT
  Sex: Female
  Weight: 73.94 kg

DRUGS (1)
  1. LIPITOR [Suspect]
     Indication: HYPERLIPIDAEMIA

REACTIONS (2)
  - DRUG ADMINISTRATION ERROR [None]
  - URINARY TRACT INFECTION [None]
